FAERS Safety Report 7095424-0 (Version None)
Quarter: 2010Q4

REPORT INFORMATION
  Report Type: 
  Country: None (occurrence: None)
  Receive Date: 20101111
  Receipt Date: 20101109
  Transmission Date: 20110411
  Serious: Yes (Hospitalization, Other)
  Sender: FDA-Public Use
  Company Number: TW-BRISTOL-MYERS SQUIBB COMPANY-15108780

PATIENT
  Age: 48 Year
  Sex: Male
  Weight: 66 kg

DRUGS (3)
  1. CETUXIMAB [Suspect]
     Indication: NON-SMALL CELL LUNG CANCER
     Dosage: STRENGTH:5MG/ML INTERRUPTED 15MAY10 AND RESTARTED 19MAY10 RECENT:5MAY10 NO.OF INF:11
     Route: 042
     Dates: start: 20100224
  2. CISPLATIN [Suspect]
     Indication: NON-SMALL CELL LUNG CANCER
     Dosage: FIRST INF:24FEB10 RECENT INF:28APR10
     Route: 042
     Dates: start: 20100224
  3. GEMCITABINE [Suspect]
     Indication: NON-SMALL CELL LUNG CANCER
     Dosage: FIRST INF:24FEB10 RECENT INF:05MAY10 DAY 1,8 OF 21 DAY CYCLE
     Route: 042
     Dates: start: 20100224

REACTIONS (3)
  - ANAEMIA [None]
  - DUODENAL ULCER [None]
  - UPPER GASTROINTESTINAL HAEMORRHAGE [None]
